FAERS Safety Report 21501374 (Version 3)
Quarter: 2022Q4

REPORT INFORMATION
  Report Type: Spontaneous
  Country: RO (occurrence: RO)
  Receive Date: 20221025
  Receipt Date: 20221107
  Transmission Date: 20230112
  Serious: Yes (Other)
  Sender: FDA-Public Use
  Company Number: RO-JNJFOC-20221034641

PATIENT
  Age: 70 Year
  Sex: Female

DRUGS (8)
  1. SPRAVATO [Suspect]
     Active Substance: ESKETAMINE
     Indication: Depression
     Dates: start: 20210823
  2. SPRAVATO [Suspect]
     Active Substance: ESKETAMINE
     Dosage: S II-II
  3. SPRAVATO [Suspect]
     Active Substance: ESKETAMINE
     Dosage: S IV-V
  4. SPRAVATO [Suspect]
     Active Substance: ESKETAMINE
     Dosage: S VI
     Dates: end: 20210929
  5. FLUOXETINE [Concomitant]
     Active Substance: FLUOXETINE HYDROCHLORIDE
     Indication: Depression
     Dates: start: 202106
  6. FLUOXETINE [Concomitant]
     Active Substance: FLUOXETINE HYDROCHLORIDE
     Dosage: 3RD EPISODE
     Dates: end: 202109
  7. ARIPIPRAZOLE [Concomitant]
     Active Substance: ARIPIPRAZOLE
  8. LITHIUM CARBONATE [Concomitant]
     Active Substance: LITHIUM CARBONATE
     Indication: Depression
     Dates: start: 202106, end: 202109

REACTIONS (5)
  - Hypertension [Recovered/Resolved]
  - Akathisia [Recovered/Resolved]
  - Dysgeusia [Recovered/Resolved]
  - Drug ineffective [Unknown]
  - Vertigo [Recovered/Resolved]

NARRATIVE: CASE EVENT DATE: 20210901
